FAERS Safety Report 8240402-9 (Version None)
Quarter: 2012Q1

REPORT INFORMATION
  Report Type: 
  Country: None (occurrence: None)
  Receive Date: 20120328
  Receipt Date: 20120320
  Transmission Date: 20120608
  Serious: Yes (Disabling, Other)
  Sender: FDA-Public Use
  Company Number: IN-JNJFOC-20120310336

PATIENT
  Age: 49 Year
  Sex: Male

DRUGS (1)
  1. LEVOFLOXACIN [Suspect]
     Indication: SINUSITIS
     Route: 048

REACTIONS (4)
  - RESPIRATORY DISTRESS [None]
  - OPTIC NEURITIS [None]
  - DIZZINESS [None]
  - CONFUSIONAL STATE [None]
